FAERS Safety Report 7888354-5 (Version None)
Quarter: 2011Q4

REPORT INFORMATION
  Report Type: 
  Country: None (occurrence: None)
  Receive Date: 20111103
  Receipt Date: 20111020
  Transmission Date: 20120403
  Serious: Yes (Hospitalization, Other)
  Sender: FDA-Public Use
  Company Number: PHHY2011JP89573

PATIENT
  Age: 62 Year
  Sex: Female

DRUGS (15)
  1. RIVASTIGMINE [Suspect]
     Dosage: 9 MG, QD
     Dates: start: 20111018
  2. HIRNAMIN [Concomitant]
     Dosage: 10 MG, BID
     Dates: start: 20111014
  3. AMLODIPINE BESYLATE [Concomitant]
     Dosage: 2.5 MG, UNK
     Dates: start: 20110809
  4. AMARYL [Concomitant]
  5. KAMAG G [Concomitant]
  6. RIVASTIGMINE [Suspect]
     Indication: DEMENTIA ALZHEIMER'S TYPE
     Dosage: 4.5 MG, QD
     Route: 062
     Dates: start: 20110809, end: 20110905
  7. DAIO-KANZO-TO [Concomitant]
  8. LITHIUM CARBONATE [Concomitant]
  9. GASMOTIN [Concomitant]
  10. LIPITOR [Concomitant]
  11. VOGLIBOSE [Concomitant]
  12. RIVASTIGMINE [Suspect]
     Dosage: 13.5 MG, QD
     Route: 062
     Dates: start: 20111004, end: 20111017
  13. ASPIRIN [Concomitant]
  14. RIVASTIGMINE [Suspect]
     Dosage: 9 MG, QD
     Route: 062
     Dates: start: 20110906, end: 20111003
  15. HIRNAMIN [Concomitant]
     Dosage: 5 MG, BID
     Dates: start: 20111012, end: 20111014

REACTIONS (8)
  - LOGORRHOEA [None]
  - PERSONALITY CHANGE [None]
  - MENTAL DISORDER [None]
  - CELLULITIS [None]
  - MANIA [None]
  - EUPHORIC MOOD [None]
  - FALL [None]
  - DRUG INEFFECTIVE [None]
